FAERS Safety Report 9455408 (Version 2)
Quarter: 2013Q3

REPORT INFORMATION
  Report Type: Spontaneous
  Country: US (occurrence: US)
  Receive Date: 20130813
  Receipt Date: 20130910
  Transmission Date: 20140515
  Serious: No
  Sender: FDA-Public Use
  Company Number: US-ELI_LILLY_AND_COMPANY-US201308002536

PATIENT
  Age: 64 Year
  Sex: Male
  Weight: 94.33 kg

DRUGS (2)
  1. CIALIS [Suspect]
     Indication: ERECTILE DYSFUNCTION
     Dosage: 20 MG, PRN
  2. CIALIS [Suspect]
     Dosage: 20 MG, PRN

REACTIONS (3)
  - Vision blurred [Recovered/Resolved]
  - Suspected counterfeit product [Unknown]
  - Drug ineffective [Recovered/Resolved]
